FAERS Safety Report 14844725 (Version 2)
Quarter: 2018Q2

REPORT INFORMATION
  Report Type: Report from Study
  Country: US (occurrence: US)
  Receive Date: 20180504
  Receipt Date: 20180517
  Transmission Date: 20180711
  Serious: Yes (Other)
  Sender: FDA-Public Use
  Company Number: US-ROCHE-2112302

PATIENT
  Age: 11 Year

DRUGS (1)
  1. HEMLIBRA [Suspect]
     Active Substance: EMICIZUMAB-KXWH
     Indication: HAEMOPHILIA
     Dosage: DOSE REPORTED AS UNKNOWN
     Route: 058

REACTIONS (2)
  - Drug ineffective [Unknown]
  - Haemorrhage [Recovered/Resolved]
